FAERS Safety Report 4584160-8 (Version None)
Quarter: 2005Q1

REPORT INFORMATION
  Report Type: 
  Country: None (occurrence: None)
  Receive Date: 20050125
  Receipt Date: 20041101
  Transmission Date: 20050727
  Serious: No
  Sender: FDA-Public Use
  Company Number: USA041182879

PATIENT
  Age: 76 Year
  Sex: Female

DRUGS (6)
  1. FORTEO [Suspect]
     Indication: OSTEOPOROSIS
     Dates: start: 20040101
  2. COUMADIN [Concomitant]
  3. LIPITOR [Concomitant]
  4. ASACOL [Concomitant]
  5. SYNTHROID [Concomitant]
  6. PREVACID [Concomitant]

REACTIONS (1)
  - PROTHROMBIN TIME PROLONGED [None]
